FAERS Safety Report 25216175 (Version 4)
Quarter: 2025Q2

REPORT INFORMATION
  Report Type: Other
  Country: US (occurrence: US)
  Receive Date: 20250418
  Receipt Date: 20250609
  Transmission Date: 20250717
  Serious: Yes (Other)
  Sender: NEUROCRINE BIOSCIENCES
  Company Number: US-NEUROCRINE BIOSCIENCES INC.-2025NBI04599

PATIENT
  Age: 85 Year
  Sex: Female

DRUGS (3)
  1. INGREZZA [Suspect]
     Active Substance: VALBENAZINE DITOSYLATE
     Indication: Tardive dyskinesia
     Route: 048
     Dates: start: 202505, end: 202505
  2. INGREZZA [Suspect]
     Active Substance: VALBENAZINE DITOSYLATE
     Route: 048
     Dates: start: 202504
  3. INGREZZA [Suspect]
     Active Substance: VALBENAZINE DITOSYLATE
     Route: 048
     Dates: start: 20250402, end: 202504

REACTIONS (2)
  - Unresponsive to stimuli [Recovered/Resolved]
  - Feeling abnormal [Recovered/Resolved]

NARRATIVE: CASE EVENT DATE: 20250401
